FAERS Safety Report 9709834 (Version 1)
Quarter: 2013Q4

REPORT INFORMATION
  Report Type: Spontaneous
  Country: US (occurrence: US)
  Receive Date: 20131126
  Receipt Date: 20131126
  Transmission Date: 20140711
  Serious: No
  Sender: FDA-Public Use
  Company Number: US-PFIZER INC-2013337580

PATIENT
  Sex: Male

DRUGS (2)
  1. LYRICA [Suspect]
     Dosage: UNK
     Dates: start: 201311
  2. LYRICA [Suspect]
     Dosage: 25MG IN MORNING AND 75MG AT NIGHT, 2X/DAY
     Dates: start: 201311

REACTIONS (1)
  - Vision blurred [Not Recovered/Not Resolved]
